FAERS Safety Report 11745296 (Version 1)
Quarter: 2015Q4

REPORT INFORMATION
  Report Type: Spontaneous
  Country: JP (occurrence: JP)
  Receive Date: 20151117
  Receipt Date: 20151117
  Transmission Date: 20160304
  Serious: Yes (Other)
  Sender: FDA-Public Use
  Company Number: JP-UCBSA-2015036214

PATIENT
  Age: 34 Year
  Sex: Female

DRUGS (3)
  1. KEPPRA [Suspect]
     Active Substance: LEVETIRACETAM
     Dosage: DOSE WAS SLOWLY INCREASED TO 750 MG DAILY
     Route: 048
  2. KEPPRA [Suspect]
     Active Substance: LEVETIRACETAM
     Dosage: DOSE INCREASED GRADUALLY TO 1000 MG DAILY
     Route: 048
  3. KEPPRA [Suspect]
     Active Substance: LEVETIRACETAM
     Indication: COMPLEX PARTIAL SEIZURES
     Dosage: 250 MG, ONCE DAILY (QD)
     Route: 048

REACTIONS (1)
  - Epilepsy [Recovering/Resolving]
